FAERS Safety Report 6431824-7 (Version None)
Quarter: 2009Q4

REPORT INFORMATION
  Report Type: 
  Country: None (occurrence: None)
  Receive Date: 20091104
  Receipt Date: 20091022
  Transmission Date: 20100525
  Serious: Yes (Life-Threatening)
  Sender: FDA-Public Use
  Company Number: APP200900669

PATIENT
  Age: 13 Year
  Sex: Male

DRUGS (4)
  1. AZITHROMYCIN [Suspect]
     Indication: PNEUMONIA
     Dosage: 500 MG, ONCE, INTRAVENOUS
     Route: 042
  2. AZITHROMYCIN [Suspect]
     Indication: TONSILLITIS
     Dosage: 500 MG, ONCE, INTRAVENOUS
     Route: 042
  3. PREDNISOLONE [Concomitant]
  4. PYRIDOSTIGMINE (PYRIDOSTIGMINE) [Concomitant]

REACTIONS (6)
  - CONDITION AGGRAVATED [None]
  - CYANOSIS [None]
  - LOSS OF CONSCIOUSNESS [None]
  - MYASTHENIA GRAVIS [None]
  - RESPIRATORY DISTRESS [None]
  - UNRESPONSIVE TO STIMULI [None]
